FAERS Safety Report 15610096 (Version 1)
Quarter: 2018Q4

REPORT INFORMATION
  Report Type: Spontaneous
  Country: US (occurrence: US)
  Receive Date: 20181113
  Receipt Date: 20181113
  Transmission Date: 20190205
  Serious: No
  Sender: FDA-Public Use
  Company Number: US-009507513-1811USA000116

PATIENT
  Age: 38 Year
  Sex: Male

DRUGS (1)
  1. PREGNYL [Suspect]
     Active Substance: CHORIOGONADOTROPIN ALFA
     Indication: ANDROGEN DEFICIENCY
     Dosage: 2 MILLILITER, Q3W (REPORTED AS 3 X 2 ML PER WEEK)
     Route: 030
     Dates: start: 2013

REACTIONS (3)
  - Asthenia [Not Recovered/Not Resolved]
  - Androgen deficiency [Not Recovered/Not Resolved]
  - Product dose omission [Unknown]

NARRATIVE: CASE EVENT DATE: 2018
